FAERS Safety Report 9247369 (Version 3)
Quarter: 2013Q3

REPORT INFORMATION
  Report Type: Spontaneous
  Country: TR (occurrence: TR)
  Receive Date: 20130423
  Receipt Date: 20130830
  Transmission Date: 20140515
  Serious: Yes (Other)
  Sender: FDA-Public Use
  Company Number: TR-JNJFOC-20130411499

PATIENT
  Age: 44 Year
  Sex: Female

DRUGS (5)
  1. REMICADE [Suspect]
     Indication: CROHN^S DISEASE
     Route: 042
  2. REMICADE [Suspect]
     Indication: CROHN^S DISEASE
     Route: 042
  3. REMICADE [Suspect]
     Indication: ILEAL STENOSIS
     Route: 042
  4. REMICADE [Suspect]
     Indication: ILEAL STENOSIS
     Route: 042
  5. AZATHIOPRINE [Suspect]
     Indication: ILEAL STENOSIS
     Route: 065

REACTIONS (1)
  - Biliary cirrhosis primary [Recovered/Resolved]
